FAERS Safety Report 18632198 (Version 2)
Quarter: 2020Q4

REPORT INFORMATION
  Report Type: Spontaneous
  Country: CN (occurrence: CN)
  Receive Date: 20201218
  Receipt Date: 20201223
  Transmission Date: 20210114
  Serious: Yes (Other)
  Sender: FDA-Public Use
  Company Number: CN-ROCHE-2729781

PATIENT
  Age: 66 Year
  Sex: Male

DRUGS (10)
  1. CAPECITABINE. [Concomitant]
     Active Substance: CAPECITABINE
     Indication: ADENOCARCINOMA OF COLON
     Dosage: DOMESTIC DRUG, 1 CYCLE
     Route: 048
  2. CAPECITABINE. [Concomitant]
     Active Substance: CAPECITABINE
     Dosage: DOMESTIC DRUG, FOUR CYCLES
     Route: 048
     Dates: start: 20200310, end: 20200603
  3. CAPECITABINE. [Concomitant]
     Active Substance: CAPECITABINE
     Dosage: DOMESTIC DRUG, 1 CYCLE
     Route: 048
     Dates: start: 20200723
  4. AVASTIN [Suspect]
     Active Substance: BEVACIZUMAB
     Indication: ADENOCARCINOMA OF COLON
     Dosage: 2 CYCLES
     Route: 065
     Dates: start: 20190415
  5. CAPECITABINE. [Concomitant]
     Active Substance: CAPECITABINE
     Dosage: DOMESTIC DRUG, 5 CYCLES
     Route: 048
     Dates: start: 20190812, end: 20191106
  6. OXALIPLATIN. [Concomitant]
     Active Substance: OXALIPLATIN
     Indication: ADENOCARCINOMA OF COLON
     Dosage: 2 CYCLES
     Dates: start: 20190415
  7. OXALIPLATIN. [Concomitant]
     Active Substance: OXALIPLATIN
     Dosage: 5 CYCLES
     Dates: start: 20190812, end: 20191106
  8. CAPECITABINE. [Concomitant]
     Active Substance: CAPECITABINE
     Dosage: DOMESTIC DRUG, FOUR CYCLES
     Route: 048
     Dates: start: 20191127, end: 20200214
  9. AVASTIN [Suspect]
     Active Substance: BEVACIZUMAB
     Dosage: 2 CYCLES
     Route: 065
     Dates: start: 20200723
  10. AVASTIN [Suspect]
     Active Substance: BEVACIZUMAB
     Dosage: 4 CYCLES
     Route: 065
     Dates: start: 20190902, end: 20191106

REACTIONS (5)
  - Appendicitis noninfective [Unknown]
  - Gastrointestinal disorder [Unknown]
  - Hepatic steatosis [Unknown]
  - Chronic hepatitis [Unknown]
  - Gastrointestinal inflammation [Unknown]
